FAERS Safety Report 20228198 (Version 2)
Quarter: 2022Q1

REPORT INFORMATION
  Report Type: Spontaneous
  Country: IR (occurrence: IR)
  Receive Date: 20211224
  Receipt Date: 20220127
  Transmission Date: 20220423
  Serious: Yes (Hospitalization, Congenital Anomaly, Other)
  Sender: FDA-Public Use
  Company Number: IR-LUPIN PHARMACEUTICALS INC.-2021-25382

PATIENT
  Age: 5 Day
  Sex: Male

DRUGS (7)
  1. SERTRALINE [Suspect]
     Active Substance: SERTRALINE HYDROCHLORIDE
     Indication: Major depression
     Dosage: UNK
     Route: 064
  2. QUETIAPINE FUMARATE [Suspect]
     Active Substance: QUETIAPINE FUMARATE
     Indication: Schizophrenia
     Dosage: UNK
     Route: 064
  3. PHENYTOIN SODIUM [Suspect]
     Active Substance: PHENYTOIN SODIUM
     Indication: Seizure
     Dosage: UNK
     Route: 065
  4. RISPERIDONE [Suspect]
     Active Substance: RISPERIDONE
     Indication: Schizophrenia
     Dosage: UNK
     Route: 064
  5. CLONAZEPAM [Suspect]
     Active Substance: CLONAZEPAM
     Indication: Major depression
     Dosage: UNK
     Route: 064
  6. CLONAZEPAM [Suspect]
     Active Substance: CLONAZEPAM
     Indication: Anxiety disorder
  7. PHENOBARBITAL [Concomitant]
     Active Substance: PHENOBARBITAL
     Indication: Seizure
     Dosage: UNK
     Route: 065

REACTIONS (14)
  - Seizure [Recovered/Resolved]
  - Respiratory distress [Recovered/Resolved]
  - Choroidal haemorrhage [Unknown]
  - Intraventricular haemorrhage neonatal [Unknown]
  - Cryptorchism [Unknown]
  - Congenital hydronephrosis [Unknown]
  - Atrial septal defect [Unknown]
  - Tricuspid valve incompetence [Unknown]
  - Patent ductus arteriosus [Unknown]
  - Foetal exposure during pregnancy [Unknown]
  - Rash [Recovered/Resolved]
  - Erythema [Recovered/Resolved]
  - Rash maculo-papular [Recovered/Resolved]
  - Central nervous system lesion [Unknown]
